FAERS Safety Report 20716483 (Version 1)
Quarter: 2022Q2

REPORT INFORMATION
  Report Type: Spontaneous
  Country: BR (occurrence: BR)
  Receive Date: 20220416
  Receipt Date: 20220416
  Transmission Date: 20220721
  Serious: Yes (Other)
  Sender: FDA-Public Use
  Company Number: BR-AMGEN-BRASP2022062160

PATIENT

DRUGS (1)
  1. PROLIA [Suspect]
     Active Substance: DENOSUMAB
     Indication: Osteoporosis
     Dosage: UNK
     Route: 065

REACTIONS (6)
  - Pelvic fracture [Unknown]
  - Hip fracture [Unknown]
  - Pneumonia [Unknown]
  - Forearm fracture [Unknown]
  - Humerus fracture [Unknown]
  - Infection [Unknown]
